FAERS Safety Report 6111273-1 (Version None)
Quarter: 2009Q1

REPORT INFORMATION
  Report Type: 
  Country: None (occurrence: None)
  Receive Date: 20090309
  Receipt Date: 20090225
  Transmission Date: 20090719
  Serious: Yes (Hospitalization)
  Sender: FDA-Public Use
  Company Number: PAR_02864_2009

PATIENT
  Age: 46 Year
  Sex: Female
  Weight: 74.3 kg

DRUGS (3)
  1. IBUPROFEN [Suspect]
     Indication: PAIN
     Dosage: (600 MG BID ORAL)
     Route: 048
     Dates: start: 20080706, end: 20080717
  2. NOVALGIN /00039504/ (NOVALGIN - METAMIZOLE SODIUM MONOHYDRATE) (NOT SP [Suspect]
     Indication: PYREXIA
     Dosage: (20 GTT TID ORAL)
     Route: 048
     Dates: start: 20080712, end: 20080713
  3. DOXYCYCLINE [Concomitant]

REACTIONS (6)
  - ALANINE AMINOTRANSFERASE INCREASED [None]
  - ASTHENIA [None]
  - BLOOD ALKALINE PHOSPHATASE INCREASED [None]
  - DRUG INEFFECTIVE [None]
  - GAMMA-GLUTAMYLTRANSFERASE INCREASED [None]
  - HYPERHIDROSIS [None]
